FAERS Safety Report 23776599 (Version 3)
Quarter: 2024Q4

REPORT INFORMATION
  Report Type: Spontaneous
  Country: US (occurrence: US)
  Receive Date: 20240424
  Receipt Date: 20241018
  Transmission Date: 20250115
  Serious: No
  Sender: UCB
  Company Number: US-UCBSA-2024003974

PATIENT
  Age: 54 Year
  Sex: Female

DRUGS (1)
  1. BIMZELX [Suspect]
     Active Substance: BIMEKIZUMAB-BKZX
     Indication: Psoriasis
     Dosage: 320 MILLIGRAM, EV 4 WEEKS AT WEEKS 0, 4, 8, 12 AND 16 THEN EVERY 56 DAYS
     Route: 058
     Dates: start: 202312

REACTIONS (2)
  - Psoriasis [Unknown]
  - Irritability [Unknown]

NARRATIVE: CASE EVENT DATE: 20240401
